FAERS Safety Report 20374486 (Version 1)
Quarter: 2022Q1

REPORT INFORMATION
  Report Type: Spontaneous
  Country: IT (occurrence: IT)
  Receive Date: 20220125
  Receipt Date: 20220125
  Transmission Date: 20220423
  Serious: Yes (Other)
  Sender: FDA-Public Use
  Company Number: None

PATIENT
  Age: 47 Year
  Sex: Female
  Weight: 78 kg

DRUGS (1)
  1. AIMOVIG [Suspect]
     Active Substance: ERENUMAB-AOOE
     Indication: Migraine with aura
     Dosage: 70 MICROGRAM
     Route: 065
     Dates: start: 20190519, end: 20200224

REACTIONS (1)
  - Faecaloma [Not Recovered/Not Resolved]

NARRATIVE: CASE EVENT DATE: 20200101
